FAERS Safety Report 6402833-9 (Version None)
Quarter: 2009Q4

REPORT INFORMATION
  Report Type: 
  Country: None (occurrence: None)
  Receive Date: 20091016
  Receipt Date: 20091009
  Transmission Date: 20100525
  Serious: Yes (Hospitalization)
  Sender: FDA-Public Use
  Company Number: US-BIOGENIDEC-2009BI032727

PATIENT
  Age: 38 Year
  Sex: Male

DRUGS (2)
  1. TYSABRI [Suspect]
     Indication: MULTIPLE SCLEROSIS
     Route: 042
     Dates: start: 20070131, end: 20080509
  2. TYSABRI [Suspect]
     Route: 042
     Dates: start: 20080922

REACTIONS (5)
  - COGNITIVE DISORDER [None]
  - FATIGUE [None]
  - MUSCULAR WEAKNESS [None]
  - TUNNEL VISION [None]
  - VISION BLURRED [None]
